FAERS Safety Report 22276493 (Version 2)
Quarter: 2023Q2

REPORT INFORMATION
  Report Type: Report from Study
  Country: CA (occurrence: CA)
  Receive Date: 20230503
  Receipt Date: 20230512
  Transmission Date: 20230721
  Serious: Yes (Other)
  Sender: FDA-Public Use
  Company Number: CA-JNJFOC-20230324925

PATIENT
  Age: 9 Year
  Sex: Male
  Weight: 51 kg

DRUGS (4)
  1. REMICADE [Suspect]
     Active Substance: INFLIXIMAB
     Indication: Crohn^s disease
     Route: 042
     Dates: start: 20230214
  2. REMICADE [Suspect]
     Active Substance: INFLIXIMAB
     Dosage: RE-INDUCTION AT 300 MG PRESCRIBED, FOLLOWED BY MAINTENANCE DOSING OF 300 MG EVERY 6 WEEKS.?DOSE GREA
     Route: 042
     Dates: start: 2023
  3. REMICADE [Suspect]
     Active Substance: INFLIXIMAB
     Dosage: REQUESTED DOSE INCREASE TO 400 MG FOR WEEK 6 OF RE-INDUCTION, THEN 400 MG EVERY 4 WEEK.
     Route: 042
     Dates: start: 2023
  4. REMICADE [Suspect]
     Active Substance: INFLIXIMAB
     Dosage: STAT DOSE
     Route: 042

REACTIONS (2)
  - Crohn^s disease [Unknown]
  - Drug level decreased [Unknown]

NARRATIVE: CASE EVENT DATE: 20230228
